FAERS Safety Report 7502917-8 (Version None)
Quarter: 2011Q2

REPORT INFORMATION
  Report Type: 
  Country: None (occurrence: None)
  Receive Date: 20110518
  Receipt Date: 20110510
  Transmission Date: 20111010
  Serious: Yes (Hospitalization, Other)
  Sender: FDA-Public Use
  Company Number: 2011AC000030

PATIENT
  Age: 67 Year
  Sex: Male

DRUGS (5)
  1. STALEVO 100 [Concomitant]
  2. SUNITINIB MALATE [Concomitant]
  3. CLONAZEPAM [Concomitant]
  4. DOXAZOSIN MESYLATE [Concomitant]
  5. DIGOXIN [Suspect]
     Dosage: PO
     Route: 048
     Dates: start: 20050531, end: 20051101

REACTIONS (3)
  - TOXICITY TO VARIOUS AGENTS [None]
  - PANCYTOPENIA [None]
  - RECTAL HAEMORRHAGE [None]
